FAERS Safety Report 5638352-7 (Version None)
Quarter: 2008Q1

REPORT INFORMATION
  Report Type: 
  Country: None (occurrence: None)
  Receive Date: 20080226
  Receipt Date: 20080219
  Transmission Date: 20080703
  Serious: Yes (Other)
  Sender: FDA-Public Use
  Company Number: NZ-ASTRAZENECA-2008AP01260

PATIENT
  Sex: Female

DRUGS (4)
  1. SEROQUEL [Suspect]
  2. EPILIM [Concomitant]
  3. PROZAC [Concomitant]
  4. ANTI PSYCHOTIC MEDICATION [Concomitant]

REACTIONS (5)
  - ANAPHYLACTIC REACTION [None]
  - BLOOD PRESSURE DECREASED [None]
  - DIZZINESS [None]
  - DYSPNOEA [None]
  - PARAESTHESIA ORAL [None]
